FAERS Safety Report 9375479 (Version 1)
Quarter: 2013Q2

REPORT INFORMATION
  Report Type: Spontaneous
  Country: US (occurrence: US)
  Receive Date: 20130628
  Receipt Date: 20130628
  Transmission Date: 20140414
  Serious: Yes (Other)
  Sender: FDA-Public Use
  Company Number: US-UCBSA-089650

PATIENT
  Sex: Female

DRUGS (1)
  1. KEPPRA [Suspect]
     Dosage: UNKNOWN DOSE

REACTIONS (2)
  - Abortion spontaneous [Unknown]
  - Pregnancy [Recovered/Resolved]
